FAERS Safety Report 4972736-5 (Version None)
Quarter: 2006Q2

REPORT INFORMATION
  Report Type: 
  Country: None (occurrence: None)
  Receive Date: 20060414
  Receipt Date: 20060404
  Transmission Date: 20061013
  Serious: Yes (Hospitalization)
  Sender: FDA-Public Use
  Company Number: ES-JNJFOC-20060401302

PATIENT
  Age: 52 Year
  Sex: Female

DRUGS (6)
  1. REMICADE [Suspect]
     Route: 042
  2. REMICADE [Suspect]
     Indication: RHEUMATOID ARTHRITIS
     Route: 042
  3. METHOTREXATE [Concomitant]
     Indication: RHEUMATOID ARTHRITIS
     Route: 065
  4. URBASON [Concomitant]
     Indication: RHEUMATOID ARTHRITIS
     Route: 065
  5. ACFOL [Concomitant]
     Route: 065
  6. CALCITONINE [Concomitant]
     Route: 065

REACTIONS (1)
  - DISSEMINATED TUBERCULOSIS [None]
